FAERS Safety Report 4661784-0 (Version None)
Quarter: 2005Q2

REPORT INFORMATION
  Report Type: 
  Country: None (occurrence: None)
  Receive Date: 20050513
  Receipt Date: 20050504
  Transmission Date: 20051028
  Serious: Yes (Hospitalization)
  Sender: FDA-Public Use
  Company Number: 2005AP02618

PATIENT
  Age: 59 Year
  Sex: Male
  Weight: 95 kg

DRUGS (5)
  1. ATACAND [Suspect]
     Indication: ESSENTIAL HYPERTENSION
     Route: 048
     Dates: start: 20020815
  2. LEXAPRO [Suspect]
     Indication: DEPRESSION
     Route: 048
  3. MINIPRESS [Suspect]
     Indication: ESSENTIAL HYPERTENSION
     Route: 048
  4. ZOCOR [Suspect]
     Indication: METABOLIC DISORDER
     Route: 048
     Dates: start: 20010115
  5. GLYBURIDE [Suspect]
     Indication: DIABETES MELLITUS
     Route: 048
     Dates: start: 20000115

REACTIONS (4)
  - DUODENAL ULCER [None]
  - GASTROINTESTINAL HAEMORRHAGE [None]
  - MELAENA [None]
  - PRESCRIBED OVERDOSE [None]
